FAERS Safety Report 15453880 (Version 1)
Quarter: 2018Q4

REPORT INFORMATION
  Report Type: Spontaneous
  Country: BG (occurrence: BG)
  Receive Date: 20181001
  Receipt Date: 20181001
  Transmission Date: 20190204
  Serious: Yes (Other)
  Sender: FDA-Public Use
  Company Number: PHHY2018BG111505

PATIENT
  Sex: Female

DRUGS (3)
  1. CORNEREGEL [Concomitant]
     Active Substance: DEXPANTHENOL
     Indication: POSTOPERATIVE CARE
     Dosage: UNK
     Route: 047
     Dates: start: 20180921
  2. TOBRADEX [Suspect]
     Active Substance: DEXAMETHASONE\TOBRAMYCIN
     Indication: POSTOPERATIVE CARE
     Dosage: UNK
     Route: 047
     Dates: start: 20180921
  3. NEVANAC [Suspect]
     Active Substance: NEPAFENAC
     Indication: POSTOPERATIVE CARE
     Dosage: UNK
     Route: 047
     Dates: start: 20180921

REACTIONS (3)
  - Ocular hyperaemia [Recovering/Resolving]
  - Eye haemorrhage [Unknown]
  - Macular degeneration [Unknown]

NARRATIVE: CASE EVENT DATE: 20180922
